FAERS Safety Report 12083184 (Version 3)
Quarter: 2017Q1

REPORT INFORMATION
  Report Type: Spontaneous
  Country: US (occurrence: US)
  Receive Date: 20160217
  Receipt Date: 20170303
  Transmission Date: 20170428
  Serious: No
  Sender: FDA-Public Use
  Company Number: US-PFIZER INC-2016043980

PATIENT
  Age: 64 Year
  Sex: Female

DRUGS (13)
  1. IODINE. [Suspect]
     Active Substance: IODINE
     Dosage: UNK
  2. TETRACYCLINE HCL [Suspect]
     Active Substance: TETRACYCLINE HYDROCHLORIDE
     Dosage: UNK
  3. GENTAMICIN SULFATE. [Suspect]
     Active Substance: GENTAMICIN SULFATE
     Dosage: UNK
  4. ASA [Suspect]
     Active Substance: ASPIRIN
     Dosage: UNK
  5. NUTRASWEET [Suspect]
     Active Substance: ASPARTAME
     Dosage: UNK
  6. AMBIEN [Suspect]
     Active Substance: ZOLPIDEM TARTRATE
     Dosage: UNK
  7. ASPIRIN. [Suspect]
     Active Substance: ASPIRIN
     Dosage: UNK
  8. CLINDAMYCIN HCL [Suspect]
     Active Substance: CLINDAMYCIN HYDROCHLORIDE
     Dosage: UNK
  9. RIFAMPICIN [Suspect]
     Active Substance: RIFAMPIN
     Dosage: UNK
  10. TIGAN [Suspect]
     Active Substance: TRIMETHOBENZAMIDE HYDROCHLORIDE
     Dosage: UNK
  11. DALMANE [Suspect]
     Active Substance: FLURAZEPAM HYDROCHLORIDE
     Dosage: UNK
  12. RESTENIL [Suspect]
     Active Substance: MEPROBAMATE
     Dosage: UNK
  13. RESTORIL [Suspect]
     Active Substance: TEMAZEPAM
     Dosage: UNK

REACTIONS (1)
  - Drug hypersensitivity [Unknown]
